FAERS Safety Report 7383921-X (Version None)
Quarter: 2011Q1

REPORT INFORMATION
  Report Type: 
  Country: None (occurrence: None)
  Receive Date: 20110330
  Receipt Date: 20110325
  Transmission Date: 20110831
  Serious: Yes (Other)
  Sender: FDA-Public Use
  Company Number: JP-BAYER-2011-026385

PATIENT
  Age: 62 Year
  Sex: Female

DRUGS (1)
  1. ADALAT CC [Suspect]
     Dosage: UNK
     Route: 048
     Dates: start: 20090701, end: 20090801

REACTIONS (1)
  - LIVER DISORDER [None]
